FAERS Safety Report 10210435 (Version 2)
Quarter: 2014Q2

REPORT INFORMATION
  Report Type: Report from Study
  Country: DE (occurrence: DE)
  Receive Date: 20140602
  Receipt Date: 20140602
  Transmission Date: 20141212
  Serious: Yes (Hospitalization)
  Sender: FDA-Public Use
  Company Number: DE-VERTEX PHARMACEUTICALS INC-000000000000000591

PATIENT
  Age: 40 Year
  Sex: Female
  Weight: 118 kg

DRUGS (10)
  1. VX-950 (TELAPREVIR) [Suspect]
     Indication: HEPATITIS C
     Dosage: 2250 MG, QD
     Route: 048
     Dates: start: 20120130
  2. COPEGUS [Suspect]
     Indication: HEPATITIS C
     Dosage: 1200 MG, QD
     Route: 048
     Dates: start: 20120113
  3. PEGASYS [Suspect]
     Indication: HEPATITIS C
     Dosage: 180 ?G, UNK
     Route: 058
     Dates: start: 20120113
  4. AMINEURIN [Concomitant]
  5. PANTOPRAZOL [Concomitant]
  6. METOPROLOL [Concomitant]
  7. REMERGIL [Concomitant]
  8. DOMINAL FORTE [Concomitant]
  9. ASS [Concomitant]
  10. METFORMIN [Concomitant]

REACTIONS (1)
  - Bronchopneumonia [Recovered/Resolved]
